FAERS Safety Report 9569591 (Version 1)
Quarter: 2013Q3

REPORT INFORMATION
  Report Type: Spontaneous
  Country: US (occurrence: US)
  Receive Date: 20130930
  Receipt Date: 20130930
  Transmission Date: 20140515
  Serious: No
  Sender: FDA-Public Use
  Company Number: US-AMGEN-USASP2013066331

PATIENT
  Age: 51 Year
  Sex: Female
  Weight: 52.61 kg

DRUGS (7)
  1. ENBREL [Suspect]
     Indication: PRODUCT USED FOR UNKNOWN INDICATION
     Dosage: 50 MG, QWK
     Route: 058
  2. SYNTHROID [Concomitant]
     Dosage: 100 MUG, UNK
  3. FOLIC ACID [Concomitant]
     Dosage: 20 MG, UNK
  4. METHOTREXATE [Concomitant]
     Dosage: 2.5 MG, UNK
  5. FISH OIL [Concomitant]
     Dosage: UNK
  6. ZINC [Concomitant]
     Dosage: 30 MG, UNK
  7. VITAMIN C                          /00008001/ [Concomitant]
     Dosage: 500 MG, UNK

REACTIONS (2)
  - Injection site bruising [Unknown]
  - Injection site erythema [Unknown]
